FAERS Safety Report 15804229 (Version 1)
Quarter: 2019Q1

REPORT INFORMATION
  Report Type: Spontaneous
  Country: US (occurrence: US)
  Receive Date: 20190109
  Receipt Date: 20190109
  Transmission Date: 20190417
  Serious: Yes (Death)
  Sender: FDA-Public Use
  Company Number: US-PFIZER INC-2019010085

PATIENT
  Age: 47 Year
  Sex: Female

DRUGS (5)
  1. DEFEROXAMINE MESILATE [Suspect]
     Active Substance: DEFEROXAMINE MESYLATE
     Dosage: UNK (2 G/H)
  2. SODIUM BICARBONATE. [Suspect]
     Active Substance: SODIUM BICARBONATE
     Dosage: UNK (SODIUM BICARBONATE DRIP)
  3. IRON [Concomitant]
     Active Substance: IRON
     Dosage: UNK (INGESTED A LARGE (UNKNOWN) NUMBER OF IRON TABLETS)
     Route: 048
  4. DEFEROXAMINE MESILATE [Suspect]
     Active Substance: DEFEROXAMINE MESYLATE
     Dosage: 1 G, UNK
     Route: 042
  5. DEFEROXAMINE MESILATE [Suspect]
     Active Substance: DEFEROXAMINE MESYLATE
     Dosage: 1.5 G, UNK (5 H LATER)
     Route: 042

REACTIONS (1)
  - Completed suicide [Fatal]

NARRATIVE: CASE EVENT DATE: 2017
